FAERS Safety Report 8820556 (Version 1)
Quarter: 2012Q4

REPORT INFORMATION
  Report Type: 
  Country: DE (occurrence: DE)
  Receive Date: 20121002
  Receipt Date: 20121002
  Transmission Date: 20130627
  Serious: Yes (Disabling)
  Sender: FDA-Public Use
  Company Number: DE-009507513-1209DEU010797

PATIENT
  Age: 51 Year
  Sex: Female

DRUGS (1)
  1. EZETROL [Suspect]
     Indication: HYPERCHOLESTEROLAEMIA
     Dosage: 20 mg, bid
     Route: 048
     Dates: start: 201111, end: 201209

REACTIONS (4)
  - Blood lactate dehydrogenase increased [Recovered/Resolved]
  - Blood creatine phosphokinase MB increased [Recovered/Resolved]
  - Myalgia [Recovered/Resolved]
  - Overdose [Unknown]
